FAERS Safety Report 18670038 (Version 1)
Quarter: 2020Q4

REPORT INFORMATION
  Report Type: Spontaneous
  Country: CZ (occurrence: CZ)
  Receive Date: 20201228
  Receipt Date: 20201228
  Transmission Date: 20210114
  Serious: Yes (Other)
  Sender: FDA-Public Use
  Company Number: CZ-MYLANLABS-2020M1101210

PATIENT
  Sex: Female

DRUGS (2)
  1. TOPIRAMATE. [Suspect]
     Active Substance: TOPIRAMATE
     Indication: MIGRAINE
     Dosage: 25 MILLIGRAM, BID
     Route: 048
     Dates: start: 2016
  2. METOPROLOL. [Suspect]
     Active Substance: METOPROLOL
     Indication: MIGRAINE
     Dosage: 50 MILLIGRAM, QD
     Route: 048
     Dates: start: 201601

REACTIONS (4)
  - Medication error [Unknown]
  - Syncope [Unknown]
  - Sedation [Recovering/Resolving]
  - Confusional state [Recovering/Resolving]
